FAERS Safety Report 13397352 (Version 2)
Quarter: 2017Q2

REPORT INFORMATION
  Report Type: Spontaneous
  Country: JP (occurrence: JP)
  Receive Date: 20170403
  Receipt Date: 20170412
  Transmission Date: 20170830
  Serious: Yes (Other)
  Sender: FDA-Public Use
  Company Number: JP-SEATTLE GENETICS-2017SGN00836

PATIENT

DRUGS (2)
  1. ADCETRIS [Suspect]
     Active Substance: BRENTUXIMAB VEDOTIN
     Indication: ANAPLASTIC LARGE-CELL LYMPHOMA
     Dosage: 1.8 MG/KG, Q3WEEKS
     Route: 041
     Dates: start: 20160914
  2. ADCETRIS [Suspect]
     Active Substance: BRENTUXIMAB VEDOTIN
     Dosage: 1.8 MG/KG, Q3WEEKS
     Route: 041

REACTIONS (2)
  - Condition aggravated [Recovered/Resolved]
  - Hernia [Recovered/Resolved]

NARRATIVE: CASE EVENT DATE: 201703
